FAERS Safety Report 5243904-2 (Version None)
Quarter: 2007Q1

REPORT INFORMATION
  Report Type: 
  Country: None (occurrence: None)
  Receive Date: 20070222
  Receipt Date: 20070207
  Transmission Date: 20070707
  Serious: Yes (Other)
  Sender: FDA-Public Use
  Company Number: PHNU2007DE00825

PATIENT
  Sex: Female

DRUGS (2)
  1. ENTUMIN [Suspect]
     Indication: SUICIDE ATTEMPT
     Dosage: 200 MG/DAY
     Route: 048
     Dates: start: 20050101
  2. CLOZAPINE [Suspect]
     Indication: SUICIDE ATTEMPT
     Dosage: 200 MG/DAY
     Route: 048

REACTIONS (3)
  - BRONCHITIS [None]
  - PYREXIA [None]
  - WRONG DRUG ADMINISTERED [None]
